FAERS Safety Report 4533450-3 (Version None)
Quarter: 2004Q4

REPORT INFORMATION
  Report Type: 
  Country: None (occurrence: None)
  Receive Date: 20041210
  Receipt Date: 20041012
  Transmission Date: 20050328
  Serious: Yes (Hospitalization)
  Sender: FDA-Public Use
  Company Number: RS004769-USA

PATIENT
  Age: 63 Year
  Sex: Male

DRUGS (2)
  1. ACIPHEX [Suspect]
     Indication: GASTROOESOPHAGEAL REFLUX DISEASE
     Dosage: 1 IN 1 D, ORAL
     Route: 048
     Dates: start: 20040601, end: 20040604
  2. FLOMAX [Concomitant]

REACTIONS (1)
  - MYOCARDIAL INFARCTION [None]
